FAERS Safety Report 16787282 (Version 1)
Quarter: 2019Q3

REPORT INFORMATION
  Report Type: Spontaneous
  Country: US (occurrence: US)
  Receive Date: 20190909
  Receipt Date: 20190909
  Transmission Date: 20191005
  Serious: Yes (Other)
  Sender: FDA-Public Use
  Company Number: US-ELI_LILLY_AND_COMPANY-US201908014394

PATIENT
  Sex: Male

DRUGS (5)
  1. PANTOPRAZOLE [PANTOPRAZOLE SODIUM SESQUIHYDRA [Concomitant]
     Indication: GASTROOESOPHAGEAL REFLUX DISEASE
     Dosage: UNK
     Dates: start: 1986
  2. CIALIS [Suspect]
     Active Substance: TADALAFIL
     Indication: ERECTILE DYSFUNCTION
     Dosage: 20 MG, WEEKLY (1/W)
     Route: 065
     Dates: start: 20080520, end: 20090520
  3. LISINOPRIL. [Concomitant]
     Active Substance: LISINOPRIL
     Indication: BLOOD PRESSURE MEASUREMENT
     Dosage: UNK
     Dates: start: 20081027
  4. ATORVASTATIN [Concomitant]
     Active Substance: ATORVASTATIN
     Indication: BLOOD CHOLESTEROL
     Dosage: UNK
     Dates: start: 1986
  5. VIAGRA [Suspect]
     Active Substance: SILDENAFIL CITRATE
     Indication: ERECTILE DYSFUNCTION
     Dosage: 100 MG, 2/M
     Route: 065
     Dates: start: 19980604, end: 20110429

REACTIONS (8)
  - Sleep apnoea syndrome [Not Recovered/Not Resolved]
  - Cataract cortical [Unknown]
  - Malignant melanoma [Unknown]
  - Rib fracture [Recovered/Resolved]
  - Hypermetropia [Unknown]
  - Presbyopia [Unknown]
  - Astigmatism [Unknown]
  - Cataract nuclear [Unknown]

NARRATIVE: CASE EVENT DATE: 20110623
